FAERS Safety Report 7034411-5 (Version None)
Quarter: 2010Q4

REPORT INFORMATION
  Report Type: 
  Country: None (occurrence: None)
  Receive Date: 20101008
  Receipt Date: 20100927
  Transmission Date: 20110411
  Serious: Yes (Hospitalization, Other)
  Sender: FDA-Public Use
  Company Number: PHHY2010FR65040

PATIENT
  Sex: Male

DRUGS (6)
  1. TAREG [Suspect]
     Indication: HYPERTENSION
     Dosage: 80 MG, QD
     Dates: start: 20100823, end: 20100828
  2. VOLTAREN [Suspect]
     Dosage: 2 DF
     Route: 048
     Dates: start: 20100823, end: 20100828
  3. VOGALENE [Suspect]
     Dosage: UNK
     Route: 048
     Dates: start: 20100823, end: 20100828
  4. EFFERALGAN [Suspect]
     Dosage: UNK
     Route: 048
     Dates: start: 20100823, end: 20100828
  5. OMEPRAZOLE [Suspect]
     Dosage: UNK
     Route: 048
     Dates: start: 20100823, end: 20100828
  6. TIORFAN [Concomitant]
     Indication: GASTROENTERITIS
     Dosage: UNK
     Dates: start: 20100823

REACTIONS (2)
  - MALAISE [None]
  - RENAL FAILURE ACUTE [None]
